FAERS Safety Report 7306049-3 (Version None)
Quarter: 2011Q1

REPORT INFORMATION
  Report Type: 
  Country: None (occurrence: None)
  Receive Date: 20110222
  Receipt Date: 20110218
  Transmission Date: 20110831
  Serious: Yes (Other)
  Sender: FDA-Public Use
  Company Number: CO-PFIZER INC-2011037556

PATIENT
  Sex: Male

DRUGS (5)
  1. ENALAPRIL [Concomitant]
     Indication: HYPERTENSION
     Dosage: 20 MG, 1X/DAY
     Route: 048
  2. LIPITOR [Suspect]
     Indication: BLOOD CHOLESTEROL INCREASED
     Dosage: 10 MG, 1X/DAY
     Route: 048
     Dates: start: 19960101
  3. METOPROLOL [Concomitant]
     Indication: HYPERTENSION
     Dosage: 50 MG, 2X/DAY
     Route: 048
  4. ASPIRIN [Concomitant]
  5. LOVASTATIN [Concomitant]
     Indication: BLOOD CHOLESTEROL
     Dosage: 30 MG, 1X/DAY
     Route: 048

REACTIONS (2)
  - ARTERIAL OCCLUSIVE DISEASE [None]
  - DEVICE OCCLUSION [None]
